FAERS Safety Report 8387789-4 (Version None)
Quarter: 2012Q2

REPORT INFORMATION
  Report Type: 
  Country: None (occurrence: None)
  Receive Date: 20120525
  Receipt Date: 20120515
  Transmission Date: 20120825
  Serious: Yes (Other)
  Sender: FDA-Public Use
  Company Number: FR-VIIV HEALTHCARE LIMITED-B0801502A

PATIENT
  Sex: Female

DRUGS (2)
  1. COMBIVIR [Suspect]
     Indication: HIV INFECTION
     Dosage: 1UNIT TWICE PER DAY
     Route: 064
     Dates: end: 20111012
  2. VIRAMUNE [Concomitant]
     Indication: HIV INFECTION
     Dosage: 1UNIT TWICE PER DAY
     Route: 064
     Dates: end: 20111228

REACTIONS (3)
  - FOETAL HAEMOGLOBIN DECREASED [None]
  - POLYHYDRAMNIOS [None]
  - FOETAL EXPOSURE DURING PREGNANCY [None]
